FAERS Safety Report 9101777 (Version 1)
Quarter: 2013Q1

REPORT INFORMATION
  Report Type: Spontaneous
  Country: US (occurrence: US)
  Receive Date: 20130218
  Receipt Date: 20130218
  Transmission Date: 20140127
  Serious: No
  Sender: FDA-Public Use
  Company Number: US-BAYER-2013-018634

PATIENT
  Age: 93 Year
  Sex: Female

DRUGS (3)
  1. ALEVE GELCAP [Suspect]
     Indication: BACK PAIN
     Dosage: 1 DF, BID
     Route: 048
  2. ADVIL [Concomitant]
  3. TYLENOL NOS [Concomitant]

REACTIONS (2)
  - Drug ineffective [None]
  - Incorrect drug administration duration [None]
